FAERS Safety Report 8275380-X (Version None)
Quarter: 2012Q2

REPORT INFORMATION
  Report Type: 
  Country: None (occurrence: None)
  Receive Date: 20120411
  Receipt Date: 20120403
  Transmission Date: 20120825
  Serious: Yes (Hospitalization, Other)
  Sender: FDA-Public Use
  Company Number: US-AMGEN-USASP2011009628

PATIENT
  Age: 56 Year
  Sex: Male

DRUGS (18)
  1. ENBREL [Suspect]
     Indication: PSORIASIS
     Dosage: 50 MG, QWK
     Dates: start: 20110113, end: 20110207
  2. ASPIRIN [Concomitant]
     Dosage: 81 MG, QD
  3. WARFARIN SODIUM [Concomitant]
     Dosage: UNK
  4. KEFLEX [Concomitant]
     Dosage: 500 MG, QID
     Route: 048
  5. ANTIVIRALS [Concomitant]
     Dosage: UNK
  6. FISH OIL [Concomitant]
     Dosage: UNK
  7. VITAMIN B COMPLEX CAP [Concomitant]
     Dosage: UNK
  8. MULTIVITAMIN                       /00097801/ [Concomitant]
     Dosage: UNK
  9. AMIODARONE HCL [Concomitant]
     Dosage: UNK
  10. VITAMIN D [Concomitant]
     Dosage: UNK
  11. PANTOPRAZOLE [Concomitant]
     Dosage: 40 MG, QD
     Route: 048
  12. METOPROLOL TARTRATE [Concomitant]
     Dosage: UNK
  13. PLAVIX [Concomitant]
     Dosage: UNK
  14. DILTIAZEM HCL [Concomitant]
     Dosage: UNK
  15. MULTAQ [Concomitant]
     Dosage: UNK
  16. ENBREL [Suspect]
     Indication: PSORIATIC ARTHROPATHY
     Dosage: 50 MG, 2 TIMES/WK
     Dates: start: 20101027, end: 20110113
  17. ENBREL [Suspect]
     Dosage: 50 MG, 2 TIMES/WK
     Route: 058
     Dates: start: 20101027, end: 20110205
  18. CIALIS [Concomitant]
     Dosage: UNK

REACTIONS (50)
  - STAPHYLOCOCCAL INFECTION [None]
  - MUSCULAR WEAKNESS [None]
  - NAIL DYSTROPHY [None]
  - JOINT WARMTH [None]
  - NAIL DISORDER [None]
  - PSORIASIS [None]
  - ABSCESS [None]
  - EMBOLISM [None]
  - CARPAL TUNNEL SYNDROME [None]
  - OEDEMA PERIPHERAL [None]
  - PRURITUS [None]
  - LARYNGITIS [None]
  - VASCULITIC RASH [None]
  - ATRIAL FIBRILLATION [None]
  - IMMUNOSUPPRESSION [None]
  - SKIN EXFOLIATION [None]
  - HYPERAESTHESIA [None]
  - PSORIATIC ARTHROPATHY [None]
  - ONYCHOMYCOSIS [None]
  - JOINT SWELLING [None]
  - NAIL HYPERTROPHY [None]
  - PAIN IN EXTREMITY [None]
  - ORAL PAIN [None]
  - JOINT STIFFNESS [None]
  - HAEMANGIOMA [None]
  - VASCULITIS [None]
  - PULMONARY FIBROSIS [None]
  - CELLULITIS [None]
  - POOR QUALITY SLEEP [None]
  - PARAESTHESIA [None]
  - ONYCHOCLASIS [None]
  - LICHENIFICATION [None]
  - WEIGHT DECREASED [None]
  - PERIPHERAL COLDNESS [None]
  - ASTHENIA [None]
  - EYE SWELLING [None]
  - FATIGUE [None]
  - LUNG INFILTRATION [None]
  - LYMPHADENITIS BACTERIAL [None]
  - HYPOAESTHESIA [None]
  - BODY TINEA [None]
  - SINUSITIS [None]
  - LYMPHADENOPATHY [None]
  - SEPSIS [None]
  - ARTHRALGIA [None]
  - NAIL PITTING [None]
  - DRY SKIN [None]
  - NAIL DISCOLOURATION [None]
  - ERYTHEMA [None]
  - VASCULAR INSUFFICIENCY [None]
